FAERS Safety Report 13312135 (Version 2)
Quarter: 2017Q2

REPORT INFORMATION
  Report Type: Spontaneous
  Country: FR (occurrence: FR)
  Receive Date: 20170309
  Receipt Date: 20170615
  Transmission Date: 20170830
  Serious: Yes (Death, Other)
  Sender: FDA-Public Use
  Company Number: FR-SAOL THERAPEUTICS-2017SAO00409

PATIENT
  Age: 28 Year
  Sex: Male

DRUGS (2)
  1. LIORESAL [Suspect]
     Active Substance: BACLOFEN
  2. OXAZEPAM. [Suspect]
     Active Substance: OXAZEPAM

REACTIONS (5)
  - Asphyxia [None]
  - Toxicity to various agents [Fatal]
  - Cardiac arrest [Unknown]
  - Hypoxic-ischaemic encephalopathy [None]
  - Status epilepticus [Unknown]
